FAERS Safety Report 5940162-8 (Version None)
Quarter: 2008Q4

REPORT INFORMATION
  Report Type: 
  Country: None (occurrence: None)
  Receive Date: 20081030
  Receipt Date: 20081021
  Transmission Date: 20090506
  Serious: Yes (Hospitalization)
  Sender: FDA-Public Use
  Company Number: 2008BI022959

PATIENT
  Age: 45 Year
  Sex: Female

DRUGS (3)
  1. TYSABRI [Suspect]
     Indication: MULTIPLE SCLEROSIS
     Dosage: 300 MG; QM; IV
     Route: 042
     Dates: start: 20080617, end: 20080716
  2. CON MEDS [Concomitant]
  3. AVONEX [Concomitant]

REACTIONS (6)
  - BLOOD URINE PRESENT [None]
  - DYSPAREUNIA [None]
  - HYSTERECTOMY [None]
  - INCONTINENCE [None]
  - OVARIAN CANCER [None]
  - POLLAKIURIA [None]
